FAERS Safety Report 8860139 (Version 1)
Quarter: 2012Q4

REPORT INFORMATION
  Report Type: 
  Country: US (occurrence: US)
  Receive Date: 20121025
  Receipt Date: 20121025
  Transmission Date: 20130627
  Serious: Yes (Hospitalization)
  Sender: FDA-Public Use
  Company Number: US-BIOGENIDEC-193540

PATIENT
  Age: 50 Year
  Sex: Female
  Weight: 104 kg

DRUGS (10)
  1. AVONEX [Suspect]
     Indication: MULTIPLE SCLEROSIS
     Route: 030
     Dates: start: 199808, end: 200308
  2. AVONEX [Suspect]
     Indication: MULTIPLE SCLEROSIS
     Route: 030
     Dates: start: 200308, end: 2003
  3. AVONEX [Suspect]
     Indication: MULTIPLE SCLEROSIS
     Route: 030
     Dates: start: 2003
  4. AMITRIPTYLINE [Concomitant]
     Indication: MULTIPLE SCLEROSIS
  5. IBUPROFEN [Concomitant]
     Indication: ARTHRITIS
  6. BACLOFEN [Concomitant]
     Indication: MULTIPLE SCLEROSIS
  7. LISINOPRIL [Concomitant]
     Indication: PRODUCT USED FOR UNKNOWN INDICATION
  8. ELAVIL [Concomitant]
     Indication: PRODUCT USED FOR UNKNOWN INDICATION
  9. ZANAFLEX [Concomitant]
     Indication: PRODUCT USED FOR UNKNOWN INDICATION
  10. ZIAC [Concomitant]
     Indication: PRODUCT USED FOR UNKNOWN INDICATION

REACTIONS (6)
  - Chest pain [Recovered/Resolved]
  - Influenza like illness [Not Recovered/Not Resolved]
  - Hypersensitivity [Recovered/Resolved]
  - Blood cholesterol increased [Not Recovered/Not Resolved]
  - Rash [Unknown]
  - Skin lesion [Unknown]
